FAERS Safety Report 7319321-8 (Version None)
Quarter: 2011Q1

REPORT INFORMATION
  Report Type: 
  Country: None (occurrence: None)
  Receive Date: 20110228
  Receipt Date: 20100129
  Transmission Date: 20110831
  Serious: No
  Sender: FDA-Public Use
  Company Number: A0842129A

PATIENT
  Age: 41 Year
  Sex: Male

DRUGS (2)
  1. LITHIUM [Concomitant]
  2. LAMOTRIGINE [Suspect]
     Indication: BIPOLAR II DISORDER
     Dosage: 25MG VARIABLE DOSE
     Route: 048
     Dates: start: 20090101, end: 20090101

REACTIONS (4)
  - NERVOUSNESS [None]
  - IMPATIENCE [None]
  - IRRITABILITY [None]
  - FEELING ABNORMAL [None]
